FAERS Safety Report 17944769 (Version 1)
Quarter: 2020Q2

REPORT INFORMATION
  Report Type: Report from Study
  Country: US (occurrence: US)
  Receive Date: 20200626
  Receipt Date: 20200626
  Transmission Date: 20200714
  Serious: Yes (Hospitalization, Other)
  Sender: FDA-Public Use
  Company Number: US-AUROBINDO-AUR-APL-2020-030227

PATIENT
  Age: 72 Year
  Sex: Female

DRUGS (5)
  1. CLOPIDOGREL [Suspect]
     Active Substance: CLOPIDOGREL BISULFATE
     Dosage: 75 MILLIGRAM, ONCE A DAY
     Route: 048
  2. EPTIFIBATIDE. [Suspect]
     Active Substance: EPTIFIBATIDE
     Indication: MUSCULAR WEAKNESS
     Dosage: 180 MICROGRAM/KILOGRAM
     Route: 042
  3. CLOPIDOGREL [Suspect]
     Active Substance: CLOPIDOGREL BISULFATE
     Indication: ANTIPLATELET THERAPY
     Dosage: 300 MILLIGRAM BOLUS DOSE
     Route: 048
  4. EPTIFIBATIDE. [Suspect]
     Active Substance: EPTIFIBATIDE
     Dosage: 2 MICROGRAM/KILOGRAM/MINUTE
     Route: 042
  5. ASPIRIN. [Suspect]
     Active Substance: ASPIRIN
     Indication: ANTIPLATELET THERAPY
     Dosage: 325 MILLIGRAM, ONCE A DAY
     Route: 048

REACTIONS (4)
  - Haemoglobin decreased [Unknown]
  - Pelvic haematoma [Unknown]
  - Hypotension [Unknown]
  - Disseminated intravascular coagulation [Unknown]
